FAERS Safety Report 4997127-2 (Version None)
Quarter: 2006Q2

REPORT INFORMATION
  Report Type: 
  Country: None (occurrence: None)
  Receive Date: 20060508
  Receipt Date: 20060508
  Transmission Date: 20061013
  Serious: Yes (Hospitalization)
  Sender: FDA-Public Use
  Company Number: None

PATIENT
  Age: 78 Year
  Sex: Male
  Weight: 102 kg

DRUGS (5)
  1. WARFARIN SODIUM [Suspect]
     Indication: ATRIAL FLUTTER
     Dosage: 7.5 MG   DAILY  PO
     Route: 048
     Dates: start: 20041227, end: 20041230
  2. LOVENOX [Suspect]
     Indication: ATRIAL FLUTTER
     Dosage: 100 MG   BID   SQ
     Route: 058
     Dates: start: 20041227, end: 20041230
  3. FLUTICASONE PROPIONATE [Concomitant]
  4. METOPROLOL TARTRATE [Concomitant]
  5. TERAZOSIN HCL [Concomitant]

REACTIONS (6)
  - ABDOMINAL HAEMATOMA [None]
  - ABDOMINAL PAIN [None]
  - ECCHYMOSIS [None]
  - HAEMATOCRIT DECREASED [None]
  - HYPOTENSION [None]
  - RENAL FAILURE ACUTE [None]
